FAERS Safety Report 9540199 (Version 1)
Quarter: 2013Q3

REPORT INFORMATION
  Report Type: Spontaneous
  Country: US (occurrence: US)
  Receive Date: 20130920
  Receipt Date: 20130920
  Transmission Date: 20140515
  Serious: Yes (Other)
  Sender: FDA-Public Use
  Company Number: US-BRISTOL-MYERS SQUIBB COMPANY-19406651

PATIENT
  Age: 76 Year
  Sex: Female
  Weight: 65.3 kg

DRUGS (1)
  1. ORENCIA [Suspect]
     Dosage: LAST INFUSION ON 19AUG2013.
     Route: 042

REACTIONS (1)
  - Hepatic cirrhosis [Unknown]
